FAERS Safety Report 4762852-5 (Version None)
Quarter: 2005Q3

REPORT INFORMATION
  Report Type: 
  Country: None (occurrence: None)
  Receive Date: 20050907
  Receipt Date: 20050812
  Transmission Date: 20060218
  Serious: Yes (Death)
  Sender: FDA-Public Use
  Company Number: PHBS2005JP11780

PATIENT
  Age: 82 Year
  Sex: Female

DRUGS (6)
  1. VOLTAREN [Suspect]
     Route: 054
  2. ASPIRIN [Concomitant]
  3. MICARDIS [Concomitant]
  4. AMLODIN [Concomitant]
  5. UNIPHYL [Concomitant]
  6. MUCOSTA [Concomitant]

REACTIONS (3)
  - CONDITION AGGRAVATED [None]
  - GASTRIC CANCER [None]
  - THIRST [None]
